FAERS Safety Report 20905433 (Version 1)
Quarter: 2022Q2

REPORT INFORMATION
  Report Type: Spontaneous
  Country: RS (occurrence: RS)
  Receive Date: 20220602
  Receipt Date: 20220602
  Transmission Date: 20220720
  Serious: Yes (Other)
  Sender: FDA-Public Use
  Company Number: RS-BAUSCH-BL-2022-013218

PATIENT
  Age: 69 Year
  Sex: Male

DRUGS (4)
  1. NEBIVOLOL HYDROCHLORIDE [Suspect]
     Active Substance: NEBIVOLOL HYDROCHLORIDE
     Indication: Product used for unknown indication
     Dosage: 5 (UNSPECIFIED UNIT)
     Route: 065
     Dates: start: 2018
  2. ENALAPRIL [Suspect]
     Active Substance: ENALAPRIL
     Indication: Product used for unknown indication
     Route: 065
     Dates: start: 2018
  3. METFORMIN HYDROCHLORIDE [Suspect]
     Active Substance: METFORMIN HYDROCHLORIDE
     Indication: Product used for unknown indication
     Dosage: 1000(UNSPECIFIED UNIT)
     Route: 065
     Dates: start: 2018
  4. METFORMIN HYDROCHLORIDE [Suspect]
     Active Substance: METFORMIN HYDROCHLORIDE
     Dosage: 1000(UNSPECIFIED UNIT)
     Route: 065
     Dates: start: 2018

REACTIONS (4)
  - Hypertension [Recovering/Resolving]
  - Hyperglycaemia [Recovering/Resolving]
  - Dyslipidaemia [Recovered/Resolved]
  - Headache [Unknown]
